FAERS Safety Report 10133834 (Version 1)
Quarter: 2014Q2

REPORT INFORMATION
  Report Type: Other
  Country: US (occurrence: US)
  Receive Date: 20140428
  Receipt Date: 20140428
  Transmission Date: 20141212
  Serious: Yes (Other)
  Sender: FDA-Public Use
  Company Number: US-ACORDA-ACO_103136_2014

PATIENT
  Sex: Female

DRUGS (2)
  1. AMPYRA [Suspect]
     Indication: PRODUCT USED FOR UNKNOWN INDICATION
     Dosage: 10 MG, BID
     Route: 065
     Dates: start: 20140122, end: 2014
  2. ALL OTHER THERAPEUTIC PRODUCTS [Suspect]
     Indication: WEIGHT LOSS DIET
     Dosage: UNK,UNK
     Route: 065

REACTIONS (2)
  - Cardiac disorder [Recovered/Resolved]
  - Memory impairment [Unknown]
